FAERS Safety Report 25222972 (Version 1)
Quarter: 2025Q2

REPORT INFORMATION
  Report Type: Spontaneous
  Country: US (occurrence: US)
  Receive Date: 20250422
  Receipt Date: 20250422
  Transmission Date: 20250716
  Serious: Yes (Other)
  Sender: Haleon PLC
  Company Number: US-HALEON-2238838

PATIENT
  Age: 71 Year
  Sex: Female

DRUGS (1)
  1. ADVIL COLD AND SINUS [Suspect]
     Active Substance: IBUPROFEN\PSEUDOEPHEDRINE HYDROCHLORIDE
     Indication: Product used for unknown indication
     Dates: start: 20250418, end: 20250418

REACTIONS (1)
  - Choking [Unknown]

NARRATIVE: CASE EVENT DATE: 20250418
